FAERS Safety Report 7803736-5 (Version None)
Quarter: 2011Q4

REPORT INFORMATION
  Report Type: 
  Country: None (occurrence: None)
  Receive Date: 20111010
  Receipt Date: 20111003
  Transmission Date: 20120403
  Serious: No
  Sender: FDA-Public Use
  Company Number: US-PFIZER INC-2011237700

PATIENT
  Sex: Female

DRUGS (1)
  1. TORISEL [Suspect]

REACTIONS (1)
  - JOINT SWELLING [None]
